FAERS Safety Report 4384963-9 (Version None)
Quarter: 2004Q2

REPORT INFORMATION
  Report Type: 
  Country: None (occurrence: None)
  Receive Date: 20040625
  Receipt Date: 20040615
  Transmission Date: 20050107
  Serious: Yes (Hospitalization)
  Sender: FDA-Public Use
  Company Number: PHNR2004AU01080

PATIENT
  Age: 69 Year
  Sex: Female

DRUGS (6)
  1. TEGRETOL [Suspect]
     Indication: CONVULSION
     Dosage: 400 MG, QD
     Route: 048
     Dates: end: 20030605
  2. ATACAND [Concomitant]
  3. METHYLDOPA [Concomitant]
  4. CARDIZEM CD [Concomitant]
  5. ISCOVER [Concomitant]
  6. NOTEN [Concomitant]

REACTIONS (5)
  - ASTHENIA [None]
  - HYPERTENSION [None]
  - HYPOGLYCAEMIA [None]
  - HYPONATRAEMIA [None]
  - LETHARGY [None]
